FAERS Safety Report 7121473-X (Version None)
Quarter: 2010Q4

REPORT INFORMATION
  Report Type: 
  Country: None (occurrence: None)
  Receive Date: 20101124
  Receipt Date: 20101116
  Transmission Date: 20110411
  Serious: Yes (Other)
  Sender: FDA-Public Use
  Company Number: AU-JNJFOC-20101105878

PATIENT
  Sex: Female

DRUGS (7)
  1. REMICADE [Suspect]
     Indication: CROHN'S DISEASE
     Route: 042
  2. REMICADE [Suspect]
     Route: 042
  3. REMICADE [Suspect]
     Route: 042
  4. REMICADE [Suspect]
     Route: 042
  5. IMURAN [Concomitant]
     Indication: CROHN'S DISEASE
  6. MESALAMINE [Concomitant]
     Indication: CROHN'S DISEASE
     Dosage: 3 TDS
  7. CALTRATE [Concomitant]

REACTIONS (7)
  - BURSITIS [None]
  - DYSPHORIA [None]
  - ERYTHEMA [None]
  - INFUSION RELATED REACTION [None]
  - PYREXIA [None]
  - RESPIRATORY TRACT INFECTION [None]
  - TACHYCARDIA [None]
